FAERS Safety Report 25944972 (Version 1)
Quarter: 2025Q4

REPORT INFORMATION
  Report Type: Spontaneous
  Country: US (occurrence: US)
  Receive Date: 20251021
  Receipt Date: 20251021
  Transmission Date: 20260118
  Serious: No
  Sender: Phathom Pharmaceuticals
  Company Number: US-PHATHOM PHARMACEUTICALS INC.-2025PHT02744

PATIENT
  Age: 75 Year
  Sex: Female
  Weight: 52.73 kg

DRUGS (6)
  1. VOQUEZNA [Suspect]
     Active Substance: VONOPRAZAN FUMARATE
     Indication: Gastrooesophageal reflux disease
     Dosage: 10 MG, 1X/DAY
     Route: 048
     Dates: start: 20250829, end: 20250902
  2. NEBIVOLOL [Concomitant]
     Active Substance: NEBIVOLOL
  3. MENAQUINONE 6 [Concomitant]
     Active Substance: MENAQUINONE 6
  4. ISOSORBIDE MONONITRATE [Concomitant]
     Active Substance: ISOSORBIDE MONONITRATE
  5. OMEPRAZOLE [Concomitant]
     Active Substance: OMEPRAZOLE
  6. ATORVASTATIN [Concomitant]
     Active Substance: ATORVASTATIN

REACTIONS (4)
  - Discomfort [Recovering/Resolving]
  - Illness [Recovering/Resolving]
  - Blood pressure increased [Recovering/Resolving]
  - Diarrhoea [Recovering/Resolving]

NARRATIVE: CASE EVENT DATE: 20250829
